FAERS Safety Report 22252461 (Version 3)
Quarter: 2023Q2

REPORT INFORMATION
  Report Type: Report from Study
  Country: US (occurrence: US)
  Receive Date: 20230426
  Receipt Date: 20230622
  Transmission Date: 20230721
  Serious: Yes (Other)
  Sender: FDA-Public Use
  Company Number: US-ABBVIE-4740791

PATIENT
  Sex: Male

DRUGS (2)
  1. RINVOQ [Suspect]
     Active Substance: UPADACITINIB
     Indication: Rheumatoid arthritis
     Dosage: FORM STRENGTH: 15 MILLIGRAM
     Route: 048
     Dates: start: 202301, end: 202305
  2. RINVOQ [Suspect]
     Active Substance: UPADACITINIB
     Indication: Rheumatoid arthritis
     Route: 048
     Dates: start: 20230522

REACTIONS (12)
  - Dyspnoea [Unknown]
  - Blood cholesterol increased [Unknown]
  - Device lead damage [Unknown]
  - Movement disorder [Unknown]
  - Atrial fibrillation [Recovered/Resolved]
  - Carpal tunnel syndrome [Unknown]
  - Productive cough [Recovered/Resolved]
  - Palpitations [Unknown]
  - Complication associated with device [Recovered/Resolved]
  - Lacrimation increased [Not Recovered/Not Resolved]
  - Blood test abnormal [Unknown]
  - Upper-airway cough syndrome [Not Recovered/Not Resolved]

NARRATIVE: CASE EVENT DATE: 20230101
